FAERS Safety Report 21939941 (Version 1)
Quarter: 2023Q1

REPORT INFORMATION
  Report Type: Report from Study
  Country: US (occurrence: US)
  Receive Date: 20230201
  Receipt Date: 20230201
  Transmission Date: 20230418
  Serious: No
  Sender: FDA-Public Use
  Company Number: US-EXELIXIS-CABO-22049083

PATIENT
  Sex: Female

DRUGS (1)
  1. CABOMETYX [Suspect]
     Active Substance: CABOZANTINIB S-MALATE
     Indication: Renal cancer
     Dosage: 20 MG, QD
     Route: 048
     Dates: start: 202006

REACTIONS (12)
  - Personality change [Unknown]
  - Blister [Unknown]
  - Tongue ulceration [Unknown]
  - Mood swings [Unknown]
  - Tongue blistering [Unknown]
  - Diarrhoea [Unknown]
  - Fatigue [Unknown]
  - Dry skin [Unknown]
  - Stomatitis [Unknown]
  - Skin ulcer [Unknown]
  - Abdominal pain upper [Unknown]
  - Arthralgia [Unknown]
